FAERS Safety Report 7044656-6 (Version None)
Quarter: 2010Q4

REPORT INFORMATION
  Report Type: 
  Country: None (occurrence: None)
  Receive Date: 20101014
  Receipt Date: 20101012
  Transmission Date: 20110411
  Serious: Yes (Hospitalization, Other)
  Sender: FDA-Public Use
  Company Number: GB-WYE-G06800110

PATIENT
  Age: 68 Year
  Sex: Female

DRUGS (8)
  1. IBUPROFEN [Suspect]
     Indication: POSTOPERATIVE ANALGESIA
     Dosage: 200MG, 3 DOSES IN TOTAL
     Route: 048
     Dates: start: 20101003, end: 20101003
  2. RIVAROXABAN [Suspect]
     Indication: THROMBOSIS PROPHYLAXIS
     Dosage: 10MG, 2 IN TOTAL
     Route: 048
     Dates: start: 20101002, end: 20101003
  3. RAMIPRIL [Concomitant]
     Dosage: UNKNOWN
  4. CODEINE PHOSPHATE/PARACETAMOL [Concomitant]
     Dosage: UNKNOWN
  5. LEVOTHYROXINE [Concomitant]
     Dosage: UNKNOWN
  6. MIRTAZAPINE [Concomitant]
     Dosage: UNKNOWN
  7. ACETYLSALICYLIC ACID SRT [Suspect]
     Indication: CARDIOVASCULAR DISORDER
     Route: 048
     Dates: end: 20101003
  8. ATENOLOL [Concomitant]
     Dosage: UNKNOWN

REACTIONS (2)
  - HYPOTENSION [None]
  - OESOPHAGITIS HAEMORRHAGIC [None]
